FAERS Safety Report 7493646-8 (Version None)
Quarter: 2011Q2

REPORT INFORMATION
  Report Type: 
  Country: None (occurrence: None)
  Receive Date: 20110520
  Receipt Date: 20110510
  Transmission Date: 20111010
  Serious: Yes (Hospitalization)
  Sender: FDA-Public Use
  Company Number: SE-SANOFI-AVENTIS-2011SA029729

PATIENT

DRUGS (3)
  1. CAPECITABINE [Suspect]
     Dates: start: 20110311
  2. OXALIPLATIN [Suspect]
     Dates: start: 20110311
  3. BEVACIZUMAB [Suspect]
     Dates: start: 20110311

REACTIONS (1)
  - RECTAL PERFORATION [None]
